FAERS Safety Report 8577676-0 (Version None)
Quarter: 2012Q3

REPORT INFORMATION
  Report Type: 
  Country: None (occurrence: None)
  Receive Date: 20120807
  Receipt Date: 20120803
  Transmission Date: 20120928
  Serious: Yes (Other)
  Sender: FDA-Public Use
  Company Number: IT-AMGEN-UK225874

PATIENT
  Age: 78 Year
  Sex: Female

DRUGS (4)
  1. CINACALCET HYDROCHLORIDE [Suspect]
     Indication: HYPERPARATHYROIDISM SECONDARY
     Dosage: UNK UNK, QD
     Route: 048
     Dates: start: 20070307, end: 20070510
  2. OMEPRAZOLE [Concomitant]
     Dosage: 20 MG, QD
     Route: 048
     Dates: start: 20070401
  3. COUMARIN [Concomitant]
     Dosage: 2.5 MG, QD
     Route: 048
     Dates: start: 20070314
  4. SEVELAMER HCL [Concomitant]
     Dosage: 800 MG, BID
     Route: 048
     Dates: start: 20060215

REACTIONS (1)
  - HYPOGEUSIA [None]
